FAERS Safety Report 4724498-4 (Version None)
Quarter: 2005Q3

REPORT INFORMATION
  Report Type: 
  Country: None (occurrence: None)
  Receive Date: 20050726
  Receipt Date: 20050630
  Transmission Date: 20060218
  Serious: Yes (Other)
  Sender: FDA-Public Use
  Company Number: US-BRISTOL-MYERS SQUIBB COMPANY-13021472

PATIENT
  Age: 39 Year
  Sex: Female

DRUGS (7)
  1. DOXORUBICIN [Suspect]
     Indication: BREAST CANCER METASTATIC
  2. FLUOROURACIL [Suspect]
     Indication: BREAST CANCER METASTATIC
  3. DOCETAXEL [Suspect]
     Indication: BREAST CANCER METASTATIC
  4. LEUCOVORIN [Suspect]
     Indication: BREAST CANCER METASTATIC
  5. RADIATION THERAPY [Suspect]
     Indication: BREAST CANCER METASTATIC
  6. DEXAMETHASONE [Concomitant]
     Indication: PREMEDICATION
  7. ANASTROZOLE [Concomitant]

REACTIONS (1)
  - SCLERODERMA [None]
